FAERS Safety Report 16974185 (Version 2)
Quarter: 2021Q2

REPORT INFORMATION
  Report Type: Report from Study
  Country: MX (occurrence: MX)
  Receive Date: 20191030
  Receipt Date: 20210517
  Transmission Date: 20210716
  Serious: No
  Sender: FDA-Public Use
  Company Number: PHHY2018MX010632

PATIENT
  Age: 64 Year
  Sex: Female
  Weight: 73 kg

DRUGS (7)
  1. LORATADINE. [Concomitant]
     Active Substance: LORATADINE
     Indication: PRODUCT USED FOR UNKNOWN INDICATION
     Dosage: 1 DF, Q12H
     Route: 065
     Dates: start: 20180104
  2. TAMSULOSIN [Concomitant]
     Active Substance: TAMSULOSIN
     Indication: HYPERTONIC BLADDER
     Dosage: 1 DF, QD (STARTED 6 YEARS AGO)
     Route: 048
  3. TOLTERODINE [Concomitant]
     Active Substance: TOLTERODINE
     Dosage: 1 DF, Q12H (6 YEARS AGO)
     Route: 048
  4. GALVUS MET [Suspect]
     Active Substance: METFORMIN HYDROCHLORIDE\VILDAGLIPTIN
     Indication: DIABETES MELLITUS
     Dosage: 1 DF, BID
     Route: 065
  5. GALVUS MET [Suspect]
     Active Substance: METFORMIN HYDROCHLORIDE\VILDAGLIPTIN
     Dosage: UNK
     Route: 065
  6. TOLTERODINE [Concomitant]
     Active Substance: TOLTERODINE
     Indication: HYPERTONIC BLADDER
     Dosage: 2 DF, QD
     Route: 065
     Dates: start: 201701
  7. GALVUS MET [Suspect]
     Active Substance: METFORMIN HYDROCHLORIDE\VILDAGLIPTIN
     Dosage: 0.5 DF (METFORMIN 500 MG, VILDAGLIPTIN 50 MG), Q12H
     Route: 048
     Dates: start: 201709

REACTIONS (16)
  - Loose tooth [Not Recovered/Not Resolved]
  - Blood glucose increased [Recovered/Resolved]
  - Nail discolouration [Unknown]
  - Discharge [Unknown]
  - Peripheral swelling [Recovered/Resolved]
  - Head discomfort [Unknown]
  - Erythema [Unknown]
  - Radius fracture [Recovered/Resolved]
  - Aphasia [Unknown]
  - Wrong technique in product usage process [Unknown]
  - Product prescribing error [Unknown]
  - Dysstasia [Unknown]
  - Lip injury [Recovered/Resolved]
  - Fall [Recovered/Resolved with Sequelae]
  - Pain in extremity [Unknown]
  - Stomatitis [Unknown]

NARRATIVE: CASE EVENT DATE: 20180617
